FAERS Safety Report 6287627-X (Version None)
Quarter: 2009Q3

REPORT INFORMATION
  Report Type: 
  Country: None (occurrence: None)
  Receive Date: 20090727
  Receipt Date: 20090727
  Transmission Date: 20100115
  Serious: Yes (Other)
  Sender: FDA-Public Use
  Company Number: None

PATIENT
  Age: 55 Year
  Sex: Male
  Weight: 102 kg

DRUGS (1)
  1. CELECOXIB [Suspect]
     Indication: PAIN
     Dosage: 200 MG EVERY DAY PO
     Route: 048
     Dates: start: 20090123, end: 20090716

REACTIONS (2)
  - CEREBROVASCULAR ACCIDENT [None]
  - DIPLOPIA [None]
